FAERS Safety Report 7629238-7 (Version None)
Quarter: 2011Q3

REPORT INFORMATION
  Report Type: 
  Country: None (occurrence: None)
  Receive Date: 20110722
  Receipt Date: 20110720
  Transmission Date: 20111222
  Serious: Yes (Death, Hospitalization, Other)
  Sender: FDA-Public Use
  Company Number: PHFR2011GB02485

PATIENT
  Sex: Male

DRUGS (1)
  1. CLOZAPINE [Suspect]
     Indication: MENTAL DISORDER
     Dosage: UNK MG,
     Route: 048

REACTIONS (6)
  - SEPSIS [None]
  - CARDIAC VALVE DISEASE [None]
  - ENDOCARDITIS BACTERIAL [None]
  - LIVER INJURY [None]
  - DEATH [None]
  - CARDIOMEGALY [None]
